FAERS Safety Report 21152030 (Version 1)
Quarter: 2022Q3

REPORT INFORMATION
  Report Type: Spontaneous
  Country: US (occurrence: US)
  Receive Date: 20220730
  Receipt Date: 20220730
  Transmission Date: 20221027
  Serious: No
  Sender: FDA-Public Use
  Company Number: US-SA-SAC20220722001190

PATIENT
  Sex: Male

DRUGS (3)
  1. JEVTANA [Suspect]
     Active Substance: CABAZITAXEL
     Indication: Product used for unknown indication
  2. ENZALUTAMIDE [Suspect]
     Active Substance: ENZALUTAMIDE
     Indication: Prostate cancer
     Dosage: UNKNOWN DOSE AND FREQUENCY
     Route: 048
  3. RELUGOLIX [Concomitant]
     Active Substance: RELUGOLIX
     Dosage: 120 MG

REACTIONS (6)
  - Prostatic specific antigen increased [Unknown]
  - Neutrophil count abnormal [Unknown]
  - Haemoglobin decreased [Unknown]
  - Dry mouth [Unknown]
  - White blood cell count decreased [Unknown]
  - Drug interaction [Unknown]
